FAERS Safety Report 22291996 (Version 1)
Quarter: 2023Q2

REPORT INFORMATION
  Report Type: Spontaneous
  Country: US (occurrence: None)
  Receive Date: 20230508
  Receipt Date: 20230508
  Transmission Date: 20230722
  Serious: No
  Sender: FDA-Public Use
  Company Number: US-MDD US Operations-MDD202204-000825

PATIENT

DRUGS (2)
  1. XADAGO [Suspect]
     Active Substance: SAFINAMIDE MESYLATE
     Indication: Parkinson^s disease
     Dosage: NOT PROVIDED
  2. XADAGO [Suspect]
     Active Substance: SAFINAMIDE MESYLATE
     Dosage: 50MG

REACTIONS (1)
  - Retinitis [Unknown]
